FAERS Safety Report 13186711 (Version 2)
Quarter: 2017Q1

REPORT INFORMATION
  Report Type: Report from Study
  Country: DE (occurrence: DE)
  Receive Date: 20170205
  Receipt Date: 20170214
  Transmission Date: 20170428
  Serious: Yes (Hospitalization)
  Sender: FDA-Public Use
  Company Number: PHHO2017DE001622

PATIENT
  Age: 46 Year
  Sex: Female
  Weight: 76 kg

DRUGS (4)
  1. LEE011 [Suspect]
     Active Substance: RIBOCICLIB
     Indication: BREAST CANCER
     Dosage: 600 MG, UNK
     Route: 048
     Dates: start: 20170110, end: 20170123
  2. GOSERELIN ACETATE [Suspect]
     Active Substance: GOSERELIN ACETATE
     Indication: BREAST CANCER
     Dosage: UNK (IMPLANT)
     Route: 058
     Dates: start: 20170110
  3. CGS 20267 [Suspect]
     Active Substance: LETROZOLE
     Indication: BREAST CANCER
     Dosage: 2.5 MG, UNK
     Route: 048
     Dates: start: 20170110
  4. LEE011 [Suspect]
     Active Substance: RIBOCICLIB
     Dosage: UNK
     Route: 048
     Dates: start: 20170204

REACTIONS (2)
  - Febrile neutropenia [Recovered/Resolved]
  - Circulatory collapse [Recovered/Resolved]

NARRATIVE: CASE EVENT DATE: 20170114
